FAERS Safety Report 8089658-6 (Version None)
Quarter: 2012Q1

REPORT INFORMATION
  Report Type: 
  Country: None (occurrence: None)
  Receive Date: 20120128
  Receipt Date: 20110808
  Transmission Date: 20120608
  Serious: No
  Sender: FDA-Public Use
  Company Number: US-ABBOTT-11P-163-0728555-00

PATIENT
  Age: 68 Year
  Sex: Female

DRUGS (6)
  1. LEVOTHYROXINE SODIUM [Concomitant]
     Indication: PRODUCT USED FOR UNKNOWN INDICATION
  2. VITAMIN B-12 [Concomitant]
     Indication: ANAEMIA
  3. CITALOPRAM [Concomitant]
     Indication: PRODUCT USED FOR UNKNOWN INDICATION
  4. LOMOTIL [Concomitant]
     Indication: DIARRHOEA
  5. HUMIRA [Suspect]
     Indication: CROHN'S DISEASE
     Dates: start: 20110401
  6. VITAMIN B-12 [Concomitant]
     Indication: BLOOD IRON DECREASED

REACTIONS (3)
  - INJECTION SITE PRURITUS [None]
  - VIRAL INFECTION [None]
  - INJECTION SITE PAIN [None]
